FAERS Safety Report 25786485 (Version 1)
Quarter: 2025Q3

REPORT INFORMATION
  Report Type: Spontaneous
  Country: US (occurrence: US)
  Receive Date: 20250910
  Receipt Date: 20250910
  Transmission Date: 20251020
  Serious: No
  Sender: SANOFI AVENTIS
  Company Number: US-SA-2025SA268779

PATIENT
  Sex: Female

DRUGS (14)
  1. DUPIXENT [Suspect]
     Active Substance: DUPILUMAB
     Indication: Idiopathic urticaria
     Dosage: 300 MG, QOW
     Route: 058
  2. AMIODARONE HYDROCHLORIDE [Concomitant]
     Active Substance: AMIODARONE HYDROCHLORIDE
  3. ASPIRIN [Concomitant]
     Active Substance: ASPIRIN
  4. FAMOTIDINE [Concomitant]
     Active Substance: FAMOTIDINE
  5. JARDIANCE [Concomitant]
     Active Substance: EMPAGLIFLOZIN
  6. LANSOPRAZOLE [Concomitant]
     Active Substance: LANSOPRAZOLE
  7. LORATADINE [Concomitant]
     Active Substance: LORATADINE
  8. LOSARTAN POTASSIUM [Concomitant]
     Active Substance: LOSARTAN POTASSIUM
  9. MECLIZINE HYDROCHLORIDE [Concomitant]
     Active Substance: MECLIZINE HYDROCHLORIDE
  10. METFORMIN HYDROCHLORIDE [Concomitant]
     Active Substance: METFORMIN HYDROCHLORIDE
  11. NORVASC [Concomitant]
     Active Substance: AMLODIPINE BESYLATE
  12. TRELEGY ELLIPTA [Concomitant]
     Active Substance: FLUTICASONE FUROATE\UMECLIDINIUM BROMIDE\VILANTEROL TRIFENATATE
  13. MONTELUKAST [Concomitant]
     Active Substance: MONTELUKAST
  14. GLIPIZIDE [Concomitant]
     Active Substance: GLIPIZIDE

REACTIONS (3)
  - Pyrexia [Unknown]
  - Fatigue [Unknown]
  - Dizziness [Unknown]
